FAERS Safety Report 8630520 (Version 2)
Quarter: 2012Q4

REPORT INFORMATION
  Report Type: 
  Country: GB (occurrence: GB)
  Receive Date: 20120622
  Receipt Date: 20121004
  Transmission Date: 20130627
  Serious: Yes (Disabling)
  Sender: FDA-Public Use
  Company Number: GB-ARROW GEN-2012-10107

PATIENT
  Age: 83 Year
  Sex: Female
  Weight: 50 kg

DRUGS (4)
  1. CLOPIDOGREL (UNKNOWN) [Suspect]
     Indication: PRODUCT USED FOR UNKNOWN INDICATION
     Dosage: 75 mg, daily
     Route: 048
     Dates: start: 20120504, end: 20120518
  2. ZOCOR [Suspect]
     Indication: PRODUCT USED FOR UNKNOWN INDICATION
     Dosage: 40 mg, daily
     Route: 048
     Dates: start: 20120504, end: 20120518
  3. CITALOPRAM [Concomitant]
     Indication: ANXIETY
     Dosage: 10 mg, daily
     Route: 065
  4. CITALOPRAM [Concomitant]
     Indication: DEPRESSION

REACTIONS (2)
  - Anxiety [Recovering/Resolving]
  - Panic attack [Recovering/Resolving]
